FAERS Safety Report 6256098-1 (Version None)
Quarter: 2009Q2

REPORT INFORMATION
  Report Type: 
  Country: None (occurrence: None)
  Receive Date: 20090630
  Receipt Date: 20090630
  Transmission Date: 20091009
  Serious: Yes (Other)
  Sender: FDA-Public Use
  Company Number: None

PATIENT
  Age: 31 Year
  Sex: Female
  Weight: 83.9154 kg

DRUGS (1)
  1. MIRENA [Suspect]
     Indication: CONTRACEPTION
     Dates: start: 20090508, end: 20090629

REACTIONS (9)
  - ACNE [None]
  - ALOPECIA [None]
  - ANXIETY [None]
  - CONTUSION [None]
  - DEPRESSION [None]
  - DIZZINESS [None]
  - HYPOAESTHESIA [None]
  - LOSS OF CONSCIOUSNESS [None]
  - WEIGHT INCREASED [None]
